FAERS Safety Report 7114030-2 (Version None)
Quarter: 2010Q4

REPORT INFORMATION
  Report Type: 
  Country: None (occurrence: None)
  Receive Date: 20101119
  Receipt Date: 20101108
  Transmission Date: 20110411
  Serious: Yes (Other)
  Sender: FDA-Public Use
  Company Number: B0684540A

PATIENT
  Sex: Male
  Weight: 84 kg

DRUGS (1)
  1. PAZOPANIB [Suspect]
     Indication: DERMATOFIBROSARCOMA
     Dosage: 800MG PER DAY
     Dates: start: 20100910, end: 20101022

REACTIONS (1)
  - CYTOLYTIC HEPATITIS [None]
